FAERS Safety Report 13277124 (Version 2)
Quarter: 2024Q1

REPORT INFORMATION
  Report Type: Spontaneous
  Country: GR (occurrence: GR)
  Receive Date: 20170228
  Receipt Date: 20240321
  Transmission Date: 20240410
  Serious: Yes (Hospitalization, Other)
  Sender: FDA-Public Use
  Company Number: GR-PFIZER INC-2017080594

PATIENT
  Age: 86 Year
  Sex: Female

DRUGS (3)
  1. PREGABALIN [Suspect]
     Active Substance: PREGABALIN
     Indication: Generalised anxiety disorder
     Dosage: UNK
     Route: 065
  2. PREGABALIN [Suspect]
     Active Substance: PREGABALIN
     Indication: Neuralgia
  3. PREGABALIN [Suspect]
     Active Substance: PREGABALIN
     Indication: Epilepsy

REACTIONS (5)
  - Intestinal pseudo-obstruction [Recovering/Resolving]
  - Adenocarcinoma of colon [Unknown]
  - Ileus [Unknown]
  - Abdominal pain [Unknown]
  - Abdominal distension [Unknown]
